FAERS Safety Report 4534563-2 (Version None)
Quarter: 2004Q4

REPORT INFORMATION
  Report Type: 
  Country: None (occurrence: None)
  Receive Date: 20041222
  Receipt Date: 20041214
  Transmission Date: 20050328
  Serious: Yes (Hospitalization)
  Sender: FDA-Public Use
  Company Number: JP-BRISTOL-MYERS SQUIBB COMPANY-12801718

PATIENT
  Age: 71 Year
  Sex: Female

DRUGS (2)
  1. IFOMIDE [Suspect]
     Indication: UTERINE CANCER
     Route: 041
     Dates: start: 20041119, end: 20041119
  2. UROMITEXAN [Suspect]
     Indication: UTERINE CANCER
     Route: 041
     Dates: start: 20041119, end: 20041119

REACTIONS (7)
  - ASPARTATE AMINOTRANSFERASE INCREASED [None]
  - BLOOD ALKALINE PHOSPHATASE INCREASED [None]
  - BLOOD CHOLESTEROL INCREASED [None]
  - BLOOD LACTATE DEHYDROGENASE INCREASED [None]
  - GAMMA-GLUTAMYLTRANSFERASE INCREASED [None]
  - HEPATIC FUNCTION ABNORMAL [None]
  - JAUNDICE [None]
